FAERS Safety Report 25440002 (Version 5)
Quarter: 2025Q3

REPORT INFORMATION
  Report Type: Spontaneous
  Country: CA (occurrence: CA)
  Receive Date: 20250616
  Receipt Date: 20250804
  Transmission Date: 20251021
  Serious: No
  Sender: PFIZER
  Company Number: CA-PFIZER INC-202500114245

PATIENT
  Age: 33 Year
  Sex: Male

DRUGS (3)
  1. ABRILADA [Suspect]
     Active Substance: ADALIMUMAB-AFZB
     Indication: Crohn^s disease
     Route: 058
     Dates: start: 20230519
  2. PREDNISONE [Concomitant]
     Active Substance: PREDNISONE
  3. AZATHIOPRINE [Concomitant]
     Active Substance: AZATHIOPRINE
     Route: 065
     Dates: start: 20230502

REACTIONS (5)
  - Exposure via skin contact [Unknown]
  - Accidental exposure to product [Unknown]
  - Device defective [Unknown]
  - Device leakage [Unknown]
  - Device mechanical issue [Unknown]
